FAERS Safety Report 20897396 (Version 1)
Quarter: 2022Q2

REPORT INFORMATION
  Report Type: Spontaneous
  Country: US (occurrence: US)
  Receive Date: 20220531
  Receipt Date: 20220531
  Transmission Date: 20220720
  Serious: No
  Sender: FDA-Public Use
  Company Number: US-BRISTOL-MYERS SQUIBB COMPANY-2022-034156

PATIENT
  Age: 54 Year
  Sex: Male
  Weight: 102.0 kg

DRUGS (1)
  1. POMALYST [Suspect]
     Active Substance: POMALIDOMIDE
     Indication: Plasma cell myeloma
     Dosage: FREQUENCY:21 ON 7 OFF
     Route: 048
     Dates: start: 20210629

REACTIONS (2)
  - Semen volume decreased [Not Recovered/Not Resolved]
  - Ejaculation disorder [Not Recovered/Not Resolved]
